FAERS Safety Report 7510289-8 (Version None)
Quarter: 2011Q2

REPORT INFORMATION
  Report Type: 
  Country: None (occurrence: None)
  Receive Date: 20110527
  Receipt Date: 20110525
  Transmission Date: 20111010
  Serious: Yes (Death, Other)
  Sender: FDA-Public Use
  Company Number: JP-CEPHALON-2011001206

PATIENT
  Age: 72 Year
  Sex: Female

DRUGS (11)
  1. BARACLUDE [Concomitant]
     Dates: start: 20091111, end: 20110225
  2. FRAGMIN [Concomitant]
     Dates: start: 20110206, end: 20110307
  3. LANSOPRAZOLE [Concomitant]
     Dates: start: 20110113, end: 20110225
  4. NEO-MINOPHAGEN C [Concomitant]
     Dates: start: 20110206, end: 20110307
  5. POTASSIUM CHLORIDE [Concomitant]
     Dates: start: 20110206, end: 20110227
  6. BIOFERMIN [Concomitant]
     Dates: start: 20110120, end: 20110225
  7. BENDAMUSTINE HCL [Suspect]
     Indication: DIFFUSE LARGE B-CELL LYMPHOMA
     Route: 042
     Dates: start: 20110224, end: 20110225
  8. BETAMETHASONE DIPROPIONATE [Concomitant]
     Dates: start: 20110223, end: 20110307
  9. RITUXIMAB [Concomitant]
     Indication: DIFFUSE LARGE B-CELL LYMPHOMA
     Dates: start: 20110223, end: 20110223
  10. PRIMPERAN TAB [Concomitant]
     Dates: start: 20110206, end: 20110227
  11. DEXAMETHASONE SODIUM PHOSPHATE [Concomitant]
     Dates: start: 20110224, end: 20110225

REACTIONS (4)
  - NEUTROPENIA [None]
  - FUNGAL SEPSIS [None]
  - CEREBRAL HAEMORRHAGE [None]
  - BACTERIAL SEPSIS [None]
